FAERS Safety Report 26207178 (Version 1)
Quarter: 2025Q4

REPORT INFORMATION
  Report Type: Spontaneous
  Country: CN (occurrence: CN)
  Receive Date: 20251229
  Receipt Date: 20251229
  Transmission Date: 20260118
  Serious: Yes (Hospitalization, Other)
  Sender: STRIDES
  Company Number: CN-STRIDES ARCOLAB LIMITED-2025SP016125

PATIENT
  Age: 69 Year
  Sex: Male

DRUGS (2)
  1. METHOTREXATE [Suspect]
     Active Substance: METHOTREXATE
     Indication: Psoriasis
     Dosage: 10 MILLIGRAM, ONCE A WEEK, LOW-DOSE
     Route: 065
  2. FOLIC ACID [Concomitant]
     Active Substance: FOLIC ACID
     Indication: Drug toxicity prophylaxis
     Dosage: 10 MILLIGRAM, ONCE A WEEK
     Route: 065

REACTIONS (5)
  - Mucocutaneous ulceration [Recovered/Resolved]
  - Myelosuppression [Recovered/Resolved]
  - Immunosuppression [Recovered/Resolved]
  - Skin exfoliation [Recovered/Resolved]
  - Toxicity to various agents [Recovered/Resolved]
